FAERS Safety Report 8915688 (Version 1)
Quarter: 2012Q4

REPORT INFORMATION
  Report Type: 
  Country: GB (occurrence: GB)
  Receive Date: 20121119
  Receipt Date: 20121119
  Transmission Date: 20130627
  Serious: Yes (Life-Threatening)
  Sender: FDA-Public Use
  Company Number: GB-TEVA-369184ISR

PATIENT
  Age: 37 Year
  Sex: Female
  Weight: 59 kg

DRUGS (3)
  1. MORPHINE [Suspect]
     Dates: start: 20121023
  2. OVRANETTE [Concomitant]
     Dates: start: 20120918
  3. CO-CODAMOL [Concomitant]
     Dates: start: 20121016

REACTIONS (1)
  - Swelling face [Recovered/Resolved]
